FAERS Safety Report 9224532 (Version 1)
Quarter: 2013Q2

REPORT INFORMATION
  Report Type: Spontaneous
  Country: JP (occurrence: JP)
  Receive Date: 20130411
  Receipt Date: 20130411
  Transmission Date: 20140414
  Serious: Yes (Other)
  Sender: FDA-Public Use
  Company Number: JP-JNJFOC-20130403595

PATIENT
  Age: 83 Year
  Sex: Male

DRUGS (1)
  1. TRAMCET [Suspect]
     Indication: PRODUCT USED FOR UNKNOWN INDICATION
     Dosage: 4 TIMES DAILY
     Route: 048

REACTIONS (2)
  - Depressed level of consciousness [Unknown]
  - Malaise [Unknown]
